FAERS Safety Report 7202111-4 (Version None)
Quarter: 2010Q4

REPORT INFORMATION
  Report Type: 
  Country: None (occurrence: None)
  Receive Date: 20101216
  Receipt Date: 20101210
  Transmission Date: 20110411
  Serious: Yes (Other)
  Sender: FDA-Public Use
  Company Number: A0899253A

PATIENT
  Age: 69 Year
  Sex: Male

DRUGS (1)
  1. UREA PEROXIDE [Suspect]
     Indication: CERUMEN IMPACTION
     Dosage: AURAL

REACTIONS (4)
  - CONDITION AGGRAVATED [None]
  - DEAFNESS UNILATERAL [None]
  - DRUG INEFFECTIVE [None]
  - TINNITUS [None]
